FAERS Safety Report 17448045 (Version 1)
Quarter: 2020Q1

REPORT INFORMATION
  Report Type: Spontaneous
  Country: GB (occurrence: GB)
  Receive Date: 20200222
  Receipt Date: 20200222
  Transmission Date: 20200409
  Serious: Yes (Other)
  Sender: FDA-Public Use
  Company Number: GB-ACCORD-173482

PATIENT
  Age: 83 Year

DRUGS (7)
  1. LISINOPRIL. [Suspect]
     Active Substance: LISINOPRIL
     Indication: HYPERTENSION
     Dosage: IN THE MORNING
     Route: 048
     Dates: start: 20190716, end: 20200121
  2. LACTULOSE. [Concomitant]
     Active Substance: LACTULOSE
  3. TEGRETOL [Concomitant]
     Active Substance: CARBAMAZEPINE
  4. LATANOPROST. [Concomitant]
     Active Substance: LATANOPROST
  5. SIMVASTATIN. [Concomitant]
     Active Substance: SIMVASTATIN
  6. BISACODYL. [Concomitant]
     Active Substance: BISACODYL
  7. SODIUM CHLORIDE. [Concomitant]
     Active Substance: SODIUM CHLORIDE

REACTIONS (1)
  - Dermatitis bullous [Recovering/Resolving]

NARRATIVE: CASE EVENT DATE: 20191125
